FAERS Safety Report 8831268 (Version 1)
Quarter: 2012Q4

REPORT INFORMATION
  Report Type: 
  Country: NZ (occurrence: NZ)
  Receive Date: 20121008
  Receipt Date: 20121008
  Transmission Date: 20130627
  Serious: Yes (Other)
  Sender: FDA-Public Use
  Company Number: NZ-PFIZER INC-2012243241

PATIENT
  Sex: Female

DRUGS (1)
  1. ZARATOR [Suspect]
     Dosage: UNK

REACTIONS (4)
  - Angina pectoris [Unknown]
  - Cardiac disorder [Unknown]
  - Malaise [Unknown]
  - Mental disorder [Unknown]
